FAERS Safety Report 8084923-0 (Version None)
Quarter: 2012Q1

REPORT INFORMATION
  Report Type: 
  Country: None (occurrence: None)
  Receive Date: 20120128
  Receipt Date: 20110327
  Transmission Date: 20120608
  Serious: No
  Sender: FDA-Public Use
  Company Number: US-ABBOTT-11P-163-0714739-00

PATIENT
  Age: 52 Year
  Sex: Male
  Weight: 93.07 kg

DRUGS (3)
  1. ADDERALL 5 [Concomitant]
     Indication: ATTENTION DEFICIT/HYPERACTIVITY DISORDER
  2. PERCOCET [Concomitant]
     Indication: PAIN
  3. HUMIRA [Suspect]
     Indication: CROHN'S DISEASE
     Dates: start: 20100701

REACTIONS (7)
  - NAUSEA [None]
  - ARTHRALGIA [None]
  - ANXIETY [None]
  - WEIGHT INCREASED [None]
  - FATIGUE [None]
  - MYALGIA [None]
  - DRUG INEFFECTIVE [None]
